FAERS Safety Report 7007030-4 (Version None)
Quarter: 2010Q3

REPORT INFORMATION
  Report Type: 
  Country: None (occurrence: None)
  Receive Date: 20100922
  Receipt Date: 20100910
  Transmission Date: 20110219
  Serious: Yes (Other)
  Sender: FDA-Public Use
  Company Number: US-CELGENEUS-163-20785-10091166

PATIENT
  Sex: Male

DRUGS (1)
  1. THALOMID [Suspect]
     Indication: MULTIPLE MYELOMA
     Route: 048
     Dates: start: 20100701

REACTIONS (7)
  - DYSURIA [None]
  - FATIGUE [None]
  - HYPOAESTHESIA [None]
  - MALAISE [None]
  - MUSCULOSKELETAL STIFFNESS [None]
  - NEURALGIA [None]
  - PARAESTHESIA [None]
